FAERS Safety Report 6656626-8 (Version None)
Quarter: 2010Q1

REPORT INFORMATION
  Report Type: 
  Country: None (occurrence: None)
  Receive Date: 20100329
  Receipt Date: 20100317
  Transmission Date: 20100710
  Serious: Yes (Hospitalization)
  Sender: FDA-Public Use
  Company Number: US-PFIZER INC-2008020339

PATIENT
  Sex: Male
  Weight: 81.1 kg

DRUGS (12)
  1. SUNITINIB MALATE [Suspect]
     Indication: PROSTATE CANCER
     Dosage: 37.5 MG, 1X/DAY
     Route: 048
     Dates: start: 20070817, end: 20080226
  2. PREDNISONE [Suspect]
     Indication: PROSTATE CANCER
     Dosage: 5 MG, 2X/DAY
     Route: 048
     Dates: start: 20070816
  3. DOCETAXEL [Suspect]
     Indication: PROSTATE CANCER
     Dosage: 75 MG/M2 (147MG), EVERY 3 WEEKS
     Route: 042
     Dates: start: 20070817, end: 20080213
  4. ASPIRIN [Concomitant]
     Route: 048
  5. ATIVAN [Concomitant]
     Route: 048
  6. BENICAR [Concomitant]
     Route: 048
  7. CALTRATE [Concomitant]
     Route: 048
  8. LIPITOR [Concomitant]
     Route: 048
  9. LUPRON [Concomitant]
     Route: 030
  10. PREVACID [Concomitant]
     Route: 048
  11. VITAMIN C [Concomitant]
     Route: 048
  12. ZOMETA [Concomitant]
     Route: 042

REACTIONS (3)
  - FATIGUE [None]
  - INTERSTITIAL LUNG DISEASE [None]
  - PYREXIA [None]
